FAERS Safety Report 7389278-2 (Version None)
Quarter: 2011Q2

REPORT INFORMATION
  Report Type: 
  Country: None (occurrence: None)
  Receive Date: 20110401
  Receipt Date: 20110328
  Transmission Date: 20111010
  Serious: Yes (Other)
  Sender: FDA-Public Use
  Company Number: FR-SANOFI-AVENTIS-2011SA018649

PATIENT
  Age: 74 Year
  Sex: Female

DRUGS (1)
  1. ELOXATIN [Suspect]
     Indication: LYMPHOMA
     Route: 042

REACTIONS (2)
  - OXYGEN SATURATION DECREASED [None]
  - PYREXIA [None]
